FAERS Safety Report 10626948 (Version 1)
Quarter: 2014Q4

REPORT INFORMATION
  Report Type: Spontaneous
  Country: GR (occurrence: GR)
  Receive Date: 20141204
  Receipt Date: 20141204
  Transmission Date: 20150529
  Serious: Yes (Hospitalization)
  Sender: FDA-Public Use
  Company Number: GR-009507513-1412GRC002146

PATIENT
  Age: 80 Year
  Sex: Male

DRUGS (1)
  1. NOXAFIL [Suspect]
     Active Substance: POSACONAZOLE
     Indication: ZYGOMYCOSIS
     Dosage: 200 MG, 4 TIMES DAILY, STRENGTH: 40MG/ML
     Route: 048

REACTIONS (4)
  - Inappropriate schedule of drug administration [Unknown]
  - Gastrointestinal toxicity [Recovering/Resolving]
  - Drug administration error [Unknown]
  - Wrong technique in drug usage process [Unknown]
